FAERS Safety Report 10459764 (Version 1)
Quarter: 2014Q3

REPORT INFORMATION
  Report Type: Spontaneous
  Country: US (occurrence: None)
  Receive Date: 20140915
  Receipt Date: 20140915
  Transmission Date: 20150326
  Serious: Yes (Hospitalization, Other)
  Sender: FDA-Public Use
  Company Number: 2009S1005960

PATIENT
  Age: 68 Year
  Sex: Male

DRUGS (8)
  1. LISINOPRIL (LISINOPRIL) [Concomitant]
     Active Substance: LISINOPRIL
  2. ZOCOR [Concomitant]
     Active Substance: SIMVASTATIN
  3. NORVASC [Concomitant]
     Active Substance: AMLODIPINE BESYLATE
  4. PHOSPHO-SODA [Suspect]
     Active Substance: SODIUM PHOSPHATE, DIBASIC\SODIUM PHOSPHATE, MONOBASIC
     Indication: COLONOSCOPY
     Route: 048
     Dates: start: 20060308, end: 20060308
  5. AMARYL [Concomitant]
     Active Substance: GLIMEPIRIDE
  6. METFORMIN [Concomitant]
     Active Substance: METFORMIN HYDROCHLORIDE
  7. AVANDIA (ROSIGLITAZONE MALEATE) [Concomitant]
  8. COZAAR (LOSARTAN POTASSIUM) [Concomitant]

REACTIONS (10)
  - Renal tubular necrosis [None]
  - Dehydration [None]
  - Hypocalcaemia [None]
  - Vomiting [None]
  - Abdominal pain [None]
  - Renal failure chronic [None]
  - Nausea [None]
  - Dialysis [None]
  - Renal failure acute [None]
  - Hyperphosphataemia [None]

NARRATIVE: CASE EVENT DATE: 20060315
